FAERS Safety Report 22056825 (Version 1)
Quarter: 2023Q1

REPORT INFORMATION
  Report Type: Spontaneous
  Country: GB (occurrence: None)
  Receive Date: 20230303
  Receipt Date: 20230303
  Transmission Date: 20230418
  Serious: Yes (Other)
  Sender: FDA-Public Use
  Company Number: GB-ROCHE-3146637

PATIENT
  Sex: Female

DRUGS (1)
  1. TOCILIZUMAB [Suspect]
     Active Substance: TOCILIZUMAB
     Indication: Rheumatoid arthritis
     Route: 058
     Dates: start: 20181002

REACTIONS (5)
  - COVID-19 [Unknown]
  - Mental disorder [Unknown]
  - Memory impairment [Unknown]
  - Bacterial vulvovaginitis [Unknown]
  - Candida infection [Unknown]
